FAERS Safety Report 7236573-3 (Version None)
Quarter: 2011Q1

REPORT INFORMATION
  Report Type: 
  Country: None (occurrence: None)
  Receive Date: 20110120
  Receipt Date: 20110112
  Transmission Date: 20110831
  Serious: Yes (Other)
  Sender: FDA-Public Use
  Company Number: FR-PFIZER INC-2011008648

PATIENT
  Sex: Female
  Weight: 74 kg

DRUGS (1)
  1. EXEMESTANE [Suspect]
     Indication: BREAST CANCER

REACTIONS (2)
  - ANKYLOSING SPONDYLITIS [None]
  - ARTHRALGIA [None]
